FAERS Safety Report 12380989 (Version 2)
Quarter: 2016Q2

REPORT INFORMATION
  Report Type: Spontaneous
  Country: US (occurrence: US)
  Receive Date: 20160518
  Receipt Date: 20160525
  Transmission Date: 20160815
  Serious: No
  Sender: FDA-Public Use
  Company Number: US-BAYER-2016-095528

PATIENT
  Age: 72 Year
  Sex: Female
  Weight: 78.5 kg

DRUGS (5)
  1. DEXTRAN [Concomitant]
     Active Substance: DEXTRAN
     Dosage: UNK
  2. ELESTAT [Concomitant]
     Active Substance: EPINASTINE HYDROCHLORIDE
     Dosage: UNK
  3. CLARITIN [Suspect]
     Active Substance: LORATADINE
     Indication: SEASONAL ALLERGY
     Dosage: 1 DF, QD
     Route: 048
     Dates: start: 20160514
  4. FLONASE [Concomitant]
     Active Substance: FLUTICASONE PROPIONATE
     Dosage: UNK
  5. TOPROL XL [Concomitant]
     Active Substance: METOPROLOL SUCCINATE
     Dosage: UNK

REACTIONS (2)
  - Expired product administered [None]
  - Dizziness [Recovered/Resolved]

NARRATIVE: CASE EVENT DATE: 20160514
